FAERS Safety Report 20796699 (Version 1)
Quarter: 2022Q2

REPORT INFORMATION
  Report Type: Spontaneous
  Country: GB (occurrence: GB)
  Receive Date: 20220506
  Receipt Date: 20220506
  Transmission Date: 20220720
  Serious: Yes (Death)
  Sender: FDA-Public Use
  Company Number: GB-MHRA-MED-202204271053270160-POCVU

PATIENT
  Age: 67 Year
  Sex: Male

DRUGS (3)
  1. AVELUMAB [Suspect]
     Active Substance: AVELUMAB
     Indication: Product used for unknown indication
     Dosage: 800 (UNSPECIFIED UNIT)?DOSAGE FORM-293
     Route: 042
     Dates: start: 20210209
  2. AVELUMAB [Suspect]
     Active Substance: AVELUMAB
     Route: 042
     Dates: start: 20210308, end: 20210308
  3. AXITINIB [Suspect]
     Active Substance: AXITINIB
     Indication: Product used for unknown indication
     Dosage: 5MG INCREASED TO 7MG FROM THE 1ST TO THE 2ND INFUSION.?DRUG DOSAGE FORM- 245

REACTIONS (2)
  - Death [Fatal]
  - Medication error [Unknown]

NARRATIVE: CASE EVENT DATE: 20210402
